FAERS Safety Report 5149647-8 (Version None)
Quarter: 2006Q4

REPORT INFORMATION
  Report Type: 
  Country: None (occurrence: None)
  Receive Date: 20061113
  Receipt Date: 20060907
  Transmission Date: 20070319
  Serious: Yes (Disabling)
  Sender: FDA-Public Use
  Company Number: BE-ROCHE-462228

PATIENT
  Age: 19 Year
  Sex: Male

DRUGS (2)
  1. ROACCUTANE [Suspect]
     Indication: ACNE
     Dosage: STRENGTH REPORTED AS 30 MG.
     Route: 048
     Dates: start: 20051125, end: 20060427
  2. ROACCUTANE [Suspect]
     Dosage: STRENGTH REPORTED AS 40 MG.
     Route: 048
     Dates: start: 20060428, end: 20060827

REACTIONS (4)
  - PLANTAR FASCIITIS [None]
  - TENDON INJURY [None]
  - TENDON RUPTURE [None]
  - TENDONITIS [None]
